FAERS Safety Report 16595243 (Version 2)
Quarter: 2019Q4

REPORT INFORMATION
  Report Type: Spontaneous
  Country: JP (occurrence: JP)
  Receive Date: 20190718
  Receipt Date: 20191015
  Transmission Date: 20200122
  Serious: Yes (Other)
  Sender: FDA-Public Use
  Company Number: JP-ASTRAZENECA-2019SE98526

PATIENT
  Age: 89 Year
  Sex: Female

DRUGS (8)
  1. TAGRISSO [Suspect]
     Active Substance: OSIMERTINIB
     Indication: NON-SMALL CELL LUNG CANCER
     Route: 048
     Dates: start: 20181127, end: 20181212
  2. AZOSEMIDE [Concomitant]
     Active Substance: AZOSEMIDE
     Dosage: 30.0MG UNKNOWN
     Dates: start: 20181218
  3. ENALAPRIL [Concomitant]
     Active Substance: ENALAPRIL
     Dates: start: 20181218
  4. SPIRONOLACTONE. [Concomitant]
     Active Substance: SPIRONOLACTONE
     Dates: start: 20181218
  5. TAGRISSO [Suspect]
     Active Substance: OSIMERTINIB
     Indication: NON-SMALL CELL LUNG CANCER
     Route: 048
     Dates: start: 20181217, end: 20181219
  6. TAGRISSO [Suspect]
     Active Substance: OSIMERTINIB
     Indication: NON-SMALL CELL LUNG CANCER
     Route: 048
     Dates: start: 20190117
  7. SAMSCA [Concomitant]
     Active Substance: TOLVAPTAN
     Dosage: 3.75MG UNKNOWN
     Dates: start: 20181225
  8. TAMBOCOR [Concomitant]
     Active Substance: FLECAINIDE ACETATE
     Dates: start: 20181218

REACTIONS (6)
  - Electrocardiogram QT prolonged [Recovered/Resolved]
  - Pleural effusion [Unknown]
  - Ventricular tachycardia [Unknown]
  - Cardiac failure [Recovering/Resolving]
  - Pyrexia [Unknown]
  - Off label use [Unknown]

NARRATIVE: CASE EVENT DATE: 20181212
